FAERS Safety Report 10342456 (Version 1)
Quarter: 2014Q3

REPORT INFORMATION
  Report Type: Spontaneous
  Country: US (occurrence: US)
  Receive Date: 20140725
  Receipt Date: 20140725
  Transmission Date: 20150326
  Serious: Yes (Other)
  Sender: FDA-Public Use
  Company Number: US-BAYER-2014-110366

PATIENT
  Age: 28 Year
  Sex: Female

DRUGS (1)
  1. SKYLA [Suspect]
     Active Substance: LEVONORGESTREL
     Indication: CONTRACEPTION
     Dosage: UNK UNK, CONT
     Route: 015
     Dates: start: 20130513, end: 20140327

REACTIONS (7)
  - Coital bleeding [None]
  - Infertility female [None]
  - Medical device discomfort [None]
  - Dyspareunia [None]
  - Genital haemorrhage [None]
  - Breast pain [None]
  - Abdominal pain [None]

NARRATIVE: CASE EVENT DATE: 201403
